FAERS Safety Report 5508698-1 (Version None)
Quarter: 2007Q4

REPORT INFORMATION
  Report Type: 
  Country: None (occurrence: None)
  Receive Date: 20071031
  Receipt Date: 20070602
  Transmission Date: 20080405
  Serious: No
  Sender: FDA-Public Use
  Company Number: 2007PV032982

PATIENT
  Age: 26 Year
  Sex: Female

DRUGS (8)
  1. SYMLIN [Suspect]
     Indication: TYPE 1 DIABETES MELLITUS
     Dosage: 60 MCG;TID;SC ; 42 MCG;SC ; 30 MCG;SC ; 15 MCG;SC
     Route: 058
     Dates: start: 20070101, end: 20070101
  2. SYMLIN [Suspect]
     Indication: TYPE 1 DIABETES MELLITUS
     Dosage: 60 MCG;TID;SC ; 42 MCG;SC ; 30 MCG;SC ; 15 MCG;SC
     Route: 058
     Dates: start: 20070401, end: 20070101
  3. SYMLIN [Suspect]
     Indication: TYPE 1 DIABETES MELLITUS
     Dosage: 60 MCG;TID;SC ; 42 MCG;SC ; 30 MCG;SC ; 15 MCG;SC
     Route: 058
     Dates: start: 20070101, end: 20070501
  4. SYMLIN [Suspect]
     Indication: TYPE 1 DIABETES MELLITUS
     Dosage: 60 MCG;TID;SC ; 42 MCG;SC ; 30 MCG;SC ; 15 MCG;SC
     Route: 058
     Dates: start: 20070501
  5. HUMALOG [Concomitant]
  6. LANTUS [Concomitant]
  7. HUMALOG [Concomitant]
  8. VICODIN [Concomitant]

REACTIONS (4)
  - BLOOD GLUCOSE INCREASED [None]
  - DECREASED APPETITE [None]
  - INJECTION SITE PAIN [None]
  - INJECTION SITE RASH [None]
